FAERS Safety Report 16291524 (Version 1)
Quarter: 2019Q2

REPORT INFORMATION
  Report Type: Spontaneous
  Country: GB (occurrence: GB)
  Receive Date: 20190509
  Receipt Date: 20190509
  Transmission Date: 20190711
  Serious: Yes (Other)
  Sender: FDA-Public Use
  Company Number: GB-TEVA-2019-GB-1045839

PATIENT
  Age: 81 Year

DRUGS (3)
  1. CLEXANE [Interacting]
     Active Substance: ENOXAPARIN SODIUM
     Dosage: 90 MILLIGRAM
     Dates: start: 20190129
  2. CLOPIDOGREL [Suspect]
     Active Substance: CLOPIDOGREL BISULFATE
     Dosage: 75 MILLIGRAM
  3. FRAGMIN [Interacting]
     Active Substance: DALTEPARIN SODIUM
     Dosage: 5000 IU
     Dates: start: 20190129

REACTIONS (3)
  - Gastrointestinal haemorrhage [Unknown]
  - Labelled drug-drug interaction medication error [Unknown]
  - Melaena [Unknown]

NARRATIVE: CASE EVENT DATE: 20190130
